FAERS Safety Report 8468217-7 (Version None)
Quarter: 2012Q2

REPORT INFORMATION
  Report Type: 
  Country: None (occurrence: None)
  Receive Date: 20120626
  Receipt Date: 20110407
  Transmission Date: 20120825
  Serious: Yes (Disabling)
  Sender: FDA-Public Use
  Company Number: US-MUTUAL PHARMACEUTICAL COMPANY, INC.-MTCA20110127

PATIENT
  Sex: Female

DRUGS (4)
  1. METOCLOPRAMIDE [Suspect]
     Indication: DYSPEPSIA
     Route: 048
     Dates: start: 20010101, end: 20070501
  2. REGLAN [Suspect]
     Indication: ABDOMINAL DISTENSION
  3. METOCLOPRAMIDE [Suspect]
     Indication: ABDOMINAL DISTENSION
  4. REGLAN [Suspect]
     Indication: DYSPEPSIA
     Route: 048
     Dates: start: 20010101, end: 20070501

REACTIONS (1)
  - TARDIVE DYSKINESIA [None]
